FAERS Safety Report 6941994-X (Version None)
Quarter: 2010Q3

REPORT INFORMATION
  Report Type: 
  Country: None (occurrence: None)
  Receive Date: 20100826
  Receipt Date: 20100818
  Transmission Date: 20110219
  Serious: Yes (Other)
  Sender: FDA-Public Use
  Company Number: PHHY2010MY10320

PATIENT
  Age: 64 Year
  Sex: Male

DRUGS (3)
  1. GALVUS MET [Suspect]
     Indication: TYPE 2 DIABETES MELLITUS
     Dosage: 1700/100 MG DAILY (850/50MG TWICE DAILY)
     Route: 065
     Dates: start: 20100116, end: 20100219
  2. ENALAPRIL [Concomitant]
     Dosage: 10 MG, DAILY
     Route: 065
  3. FELODIPINE [Concomitant]
     Dosage: 5 MG, DAILY
     Route: 065

REACTIONS (6)
  - DEHYDRATION [None]
  - FATIGUE [None]
  - MALAISE [None]
  - PALPITATIONS [None]
  - TACHYCARDIA [None]
  - TREMOR [None]
